FAERS Safety Report 23286304 (Version 1)
Quarter: 2023Q4

REPORT INFORMATION
  Report Type: Spontaneous
  Country: FR (occurrence: FR)
  Receive Date: 20231212
  Receipt Date: 20231212
  Transmission Date: 20240110
  Serious: Yes (Life-Threatening)
  Sender: FDA-Public Use
  Company Number: None

PATIENT
  Age: 78 Year
  Sex: Female
  Weight: 69 kg

DRUGS (14)
  1. CLONAZEPAM [Suspect]
     Active Substance: CLONAZEPAM
     Indication: Epilepsy
     Dosage: 1 MG/ML AMPOULES?DAILY DOSE: 1 MILLIGRAM
     Route: 042
     Dates: start: 20230609, end: 20230609
  2. MORPHINE [Suspect]
     Active Substance: MORPHINE
     Indication: Pain
     Dosage: DAILY DOSE: 10 MILLIGRAM
     Route: 058
     Dates: start: 20230608, end: 20230611
  3. OXYCODONE [Suspect]
     Active Substance: OXYCODONE
     Indication: Pain
     Dosage: 10 MG 1-0-1 ?DAILY DOSE: 20 MILLIGRAM
     Route: 048
     Dates: start: 20230530, end: 20230608
  4. OXYCODONE [Suspect]
     Active Substance: OXYCODONE
     Indication: Pain
     Dosage: DAILY DOSE: 10 MILLIGRAM
     Route: 048
     Dates: start: 20230608, end: 20230609
  5. LIORESAL [Suspect]
     Active Substance: BACLOFEN
     Indication: Muscle spasms
     Dosage: SCORED TABLET
     Route: 048
     Dates: start: 20230608, end: 20230609
  6. PREGABALIN [Suspect]
     Active Substance: PREGABALIN
     Indication: Pain
     Dosage: 150 MG 1-0-1 ?DAILY DOSE: 300 MILLIGRAM
     Route: 048
     Dates: start: 20230608, end: 20230614
  7. CALCIUM CARBONATE\CHOLECALCIFEROL [Concomitant]
     Active Substance: CALCIUM CARBONATE\CHOLECALCIFEROL
     Dosage: 2/D
     Route: 048
  8. CYANOCOBALAMIN\PYRIDOXINE HYDROCHLORIDE\THIAMINE [Concomitant]
     Active Substance: CYANOCOBALAMIN\PYRIDOXINE HYDROCHLORIDE\THIAMINE
     Dosage: 2/D
     Route: 048
  9. DIPHEN [Concomitant]
     Active Substance: DIPHENHYDRAMINE HYDROCHLORIDE
     Dosage: QUADRATE TABLET,1-0-1 ?DAILY DOSE: 200 MILLIGRAM
  10. Hydrosol polyvitamin [Concomitant]
     Dosage: 20 ML (25 DROPS/DAY
  11. METHYLPREDNISOLONE [Concomitant]
     Active Substance: METHYLPREDNISOLONE
  12. KARDEGIC [Concomitant]
     Active Substance: ASPIRIN DL-LYSINE
     Dosage: POWDER FOR?ORAL SOLUTION IN SACHET 75 MG 0-1-0 ?DAILY DOSE: 1 MILLIGRAM
     Route: 048
  13. DOLIPRANE [Concomitant]
     Active Substance: ACETAMINOPHEN
     Dosage: 2-2-2
     Route: 048
  14. ENALAPRIL [Concomitant]
     Active Substance: ENALAPRIL
     Dosage: SCORED TABLET 20 MG 1-0-0?DAILY DOSE: 20 MILLIGRAM

REACTIONS (1)
  - Respiratory distress [Recovered/Resolved]

NARRATIVE: CASE EVENT DATE: 20230609
